FAERS Safety Report 15562356 (Version 1)
Quarter: 2018Q4

REPORT INFORMATION
  Report Type: Report from Study
  Country: FR (occurrence: FR)
  Receive Date: 20181029
  Receipt Date: 20181029
  Transmission Date: 20190205
  Serious: Yes (Death, Hospitalization, Other)
  Sender: FDA-Public Use
  Company Number: FR-SA-2018SA297536

PATIENT
  Age: 73 Year
  Sex: Male

DRUGS (1)
  1. ALEMTUZUMAB [Suspect]
     Active Substance: ALEMTUZUMAB
     Indication: MYCOSIS FUNGOIDES
     Dosage: 10 MG, 3 TIMES A WEEK
     Route: 058
     Dates: start: 20180223, end: 20180716

REACTIONS (4)
  - General physical health deterioration [Fatal]
  - Hypercalcaemia of malignancy [Fatal]
  - Paraneoplastic syndrome [Fatal]
  - Acute pulmonary oedema [Fatal]

NARRATIVE: CASE EVENT DATE: 20180716
